FAERS Safety Report 5335830-5 (Version None)
Quarter: 2007Q2

REPORT INFORMATION
  Report Type: 
  Country: None (occurrence: None)
  Receive Date: 20070320
  Receipt Date: 20061127
  Transmission Date: 20071010
  Serious: Yes (Hospitalization)
  Sender: FDA-Public Use
  Company Number: 150287USA

PATIENT

DRUGS (1)
  1. METRONIDAZOLE [Suspect]
     Indication: INFECTION
     Dosage: (500 MG), ORAL
     Route: 048

REACTIONS (3)
  - DYSGEUSIA [None]
  - IMMUNE SYSTEM DISORDER [None]
  - VOMITING [None]
